FAERS Safety Report 14506204 (Version 2)
Quarter: 2018Q1

REPORT INFORMATION
  Report Type: Spontaneous
  Country: US (occurrence: US)
  Receive Date: 20180208
  Receipt Date: 20180224
  Transmission Date: 20180509
  Serious: Yes (Hospitalization)
  Sender: FDA-Public Use
  Company Number: US-TEVA-2018-US-855810

PATIENT
  Age: 75 Year
  Sex: Female

DRUGS (2)
  1. ARGATROBAN. [Suspect]
     Active Substance: ARGATROBAN
     Indication: SUBCLAVIAN ARTERY THROMBOSIS
     Route: 065
  2. HEPARIN [Suspect]
     Active Substance: HEPARIN SODIUM
     Route: 065

REACTIONS (5)
  - Heparin-induced thrombocytopenia [Unknown]
  - Haemorrhagic stroke [Unknown]
  - Respiratory failure [Unknown]
  - Ischaemic stroke [Unknown]
  - Cerebral haemorrhage [Unknown]
